FAERS Safety Report 7279120-2 (Version None)
Quarter: 2011Q1

REPORT INFORMATION
  Report Type: 
  Country: None (occurrence: None)
  Receive Date: 20110207
  Receipt Date: 20110119
  Transmission Date: 20110831
  Serious: No
  Sender: FDA-Public Use
  Company Number: US-B.I. PHARMACEUTICALS,INC./RIDGEFIELD-2011-BP-02048BP

PATIENT
  Sex: Female

DRUGS (8)
  1. CALCIUM [Concomitant]
     Indication: BLOOD CALCIUM DECREASED
     Route: 048
     Dates: start: 20080101
  2. POTASSIUM [Concomitant]
     Indication: MUSCLE SPASMS
     Dosage: 1190 MG
     Route: 048
     Dates: start: 20080101
  3. NIFEDIPINE [Concomitant]
     Indication: HYPERTENSION
     Dosage: 60 MG
     Route: 048
     Dates: start: 20070101
  4. LEVOTHYROXINE SODIUM [Concomitant]
     Indication: THYROID DISORDER
     Dosage: 100 MCG
     Route: 048
     Dates: start: 20070101
  5. SPIRIVA [Suspect]
     Indication: EMPHYSEMA
     Dosage: 18 MCG
     Route: 055
     Dates: start: 20101118
  6. ENALAPRIL MALEATE [Concomitant]
     Indication: HYPERTENSION
     Dosage: 20 MG
     Route: 048
     Dates: start: 20070101
  7. PERFOROMIST [Concomitant]
     Indication: EMPHYSEMA
     Route: 055
     Dates: start: 20101101
  8. BUDESONIDE [Concomitant]
     Indication: EMPHYSEMA
     Route: 055
     Dates: start: 20101101

REACTIONS (3)
  - URINE ODOUR ABNORMAL [None]
  - DYSURIA [None]
  - CHROMATURIA [None]
